FAERS Safety Report 5218133-9 (Version None)
Quarter: 2007Q1

REPORT INFORMATION
  Report Type: 
  Country: None (occurrence: None)
  Receive Date: 20061130
  Receipt Date: 20060824
  Transmission Date: 20070707
  Serious: Yes (Hospitalization)
  Sender: FDA-Public Use
  Company Number: US200609001522

PATIENT
  Sex: Female
  Weight: 99.3 kg

DRUGS (13)
  1. ZYPREXA [Suspect]
  2. ABILIFY [Concomitant]
  3. SEROQUEL  UNK/ (QUETIAPINE FUMARATE) [Concomitant]
  4. RISPERDAL /SWE/(RISPERIDONE) [Concomitant]
  5. THORAZINE [Concomitant]
  6. HALDOL SOLUTAB [Concomitant]
  7. NAVANE [Concomitant]
  8. DEPAKOTE [Concomitant]
  9. LITHIUM CARBONATE [Concomitant]
  10. CELEXA [Concomitant]
  11. PROZAC [Concomitant]
  12. ZOLOFT [Concomitant]
  13. ORAL CONTRACEPTIVE NOS (ORAL CONTRACEPTIVE NOS) [Concomitant]

REACTIONS (10)
  - BLOOD CHOLESTEROL ABNORMAL [None]
  - BLOOD TRIGLYCERIDES INCREASED [None]
  - DIABETES MELLITUS [None]
  - DIABETIC COMA [None]
  - HYPERGLYCAEMIA [None]
  - HYPERINSULINISM [None]
  - HYPERTENSION [None]
  - HYPOGLYCAEMIA [None]
  - INSULIN RESISTANCE [None]
  - METABOLIC DISORDER [None]
